FAERS Safety Report 4831829-3 (Version None)
Quarter: 2005Q4

REPORT INFORMATION
  Report Type: 
  Country: None (occurrence: None)
  Receive Date: 20051118
  Receipt Date: 20051110
  Transmission Date: 20060501
  Serious: Yes (Hospitalization)
  Sender: FDA-Public Use
  Company Number: ES-BRISTOL-MYERS SQUIBB COMPANY-13175583

PATIENT
  Age: 43 Year
  Sex: Male

DRUGS (5)
  1. REYATAZ [Suspect]
     Indication: HIV INFECTION
     Route: 048
     Dates: start: 20041101, end: 20051001
  2. NORVIR [Concomitant]
     Indication: HIV INFECTION
     Route: 048
     Dates: start: 20041101, end: 20051001
  3. COMBIVIR [Concomitant]
     Indication: HIV INFECTION
     Route: 048
     Dates: start: 19960301, end: 20050501
  4. INTERFERON [Concomitant]
     Indication: HEPATITIS C VIRUS
     Route: 058
     Dates: start: 20050101, end: 20050501
  5. RIBAVIRIN [Concomitant]
     Indication: HEPATITIS C VIRUS
     Dosage: AT MORNING-NIGHT
     Dates: start: 20050101, end: 20050501

REACTIONS (4)
  - BLOOD BILIRUBIN INCREASED [None]
  - DYSPNOEA [None]
  - GAMMA-GLUTAMYLTRANSFERASE INCREASED [None]
  - TRANSAMINASES INCREASED [None]
